FAERS Safety Report 8133900-X (Version None)
Quarter: 2012Q1

REPORT INFORMATION
  Report Type: 
  Country: None (occurrence: None)
  Receive Date: 20120213
  Receipt Date: 20120203
  Transmission Date: 20120608
  Serious: Yes (Hospitalization, Other)
  Sender: FDA-Public Use
  Company Number: US-ASTRAZENECA-2009SE33510

PATIENT
  Age: 66 Year
  Sex: Male

DRUGS (9)
  1. MICARDIS [Concomitant]
  2. SPIRIVA [Concomitant]
  3. INHALERS [Concomitant]
  4. LITHIUM CARBONATE [Concomitant]
     Dosage: 1200 MG EVERY DAY IN DIVIDED DOSE
  5. NORVASC [Concomitant]
  6. SENOKOT [Concomitant]
  7. SEROQUEL [Suspect]
     Route: 048
  8. SEROQUEL [Suspect]
     Indication: SLEEP DISORDER
     Route: 048
  9. ASPIRIN [Concomitant]

REACTIONS (13)
  - DELUSION [None]
  - ADVERSE EVENT [None]
  - EMPHYSEMA [None]
  - BIPOLAR DISORDER [None]
  - HYPERTENSION [None]
  - DYSPNOEA [None]
  - LOSS OF EMPLOYMENT [None]
  - HYPERSOMNIA [None]
  - ACTIVITIES OF DAILY LIVING IMPAIRED [None]
  - MYOCARDIAL INFARCTION [None]
  - BIPOLAR I DISORDER [None]
  - MANIA [None]
  - WRONG DRUG ADMINISTERED [None]
